FAERS Safety Report 9948449 (Version 2)
Quarter: 2014Q1

REPORT INFORMATION
  Report Type: Report from Study
  Country: US (occurrence: US)
  Receive Date: 20140303
  Receipt Date: 20140303
  Transmission Date: 20141002
  Serious: Yes (Hospitalization)
  Sender: FDA-Public Use
  Company Number: US-ABBVIE-13P-163-1057123-00

PATIENT
  Age: 21 Year
  Sex: Female
  Weight: 88.53 kg

DRUGS (2)
  1. HUMIRA [Suspect]
     Indication: PSORIASIS
     Dates: start: 201106, end: 201201
  2. HUMIRA [Suspect]
     Dates: start: 20130227

REACTIONS (3)
  - Mammoplasty [Recovered/Resolved]
  - Psoriasis [Not Recovered/Not Resolved]
  - Device malfunction [Unknown]
